FAERS Safety Report 7202027-3 (Version None)
Quarter: 2010Q4

REPORT INFORMATION
  Report Type: 
  Country: None (occurrence: None)
  Receive Date: 20101229
  Receipt Date: 20101220
  Transmission Date: 20110411
  Serious: No
  Sender: FDA-Public Use
  Company Number: JP-JNJFOC-20101204586

PATIENT
  Age: 58 Year
  Sex: Male
  Weight: 92 kg

DRUGS (17)
  1. REMICADE [Suspect]
     Indication: PSORIATIC ARTHROPATHY
     Route: 042
  2. REMICADE [Suspect]
     Route: 042
  3. REMICADE [Suspect]
     Route: 042
  4. REMICADE [Suspect]
     Route: 042
  5. REMICADE [Suspect]
     Indication: PUSTULAR PSORIASIS
     Route: 042
  6. REMICADE [Suspect]
     Route: 042
  7. REMICADE [Suspect]
     Route: 042
  8. REMICADE [Suspect]
     Route: 042
  9. DERMOVATE [Suspect]
     Indication: PUSTULAR PSORIASIS
  10. CYCLOSPORINE [Concomitant]
     Indication: PUSTULAR PSORIASIS
     Route: 048
  11. TACALCITOL [Concomitant]
     Indication: PUSTULAR PSORIASIS
     Route: 047
  12. NORVASC [Concomitant]
     Indication: HYPERTENSION
     Route: 048
  13. LOSARTAN POTASSIUM AND HYDROCHLOROTHIAZIDE [Concomitant]
     Indication: HYPERTENSION
     Dosage: 1 TAB
     Route: 048
  14. LIPITOR [Concomitant]
     Indication: HYPERLIPIDAEMIA
     Route: 048
  15. MYSLEE [Concomitant]
     Indication: INSOMNIA
     Route: 048
  16. BENET [Concomitant]
     Indication: OSTEOPOROSIS
     Route: 048
  17. URINORM [Concomitant]
     Indication: HYPERURICAEMIA
     Route: 048

REACTIONS (3)
  - ADRENAL INSUFFICIENCY [None]
  - HEPATIC FUNCTION ABNORMAL [None]
  - TENSION HEADACHE [None]
